FAERS Safety Report 6127143-9 (Version None)
Quarter: 2009Q1

REPORT INFORMATION
  Report Type: 
  Country: None (occurrence: None)
  Receive Date: 20090320
  Receipt Date: 20080909
  Transmission Date: 20090719
  Serious: No
  Sender: FDA-Public Use
  Company Number: US-ABBOTT-08P-163-0475257-00

PATIENT
  Sex: Female
  Weight: 86.26 kg

DRUGS (6)
  1. ERYTHROMYCIN ES TABLETS [Suspect]
     Indication: ALVEOLAR OSTEITIS
     Route: 048
     Dates: start: 20080905, end: 20080909
  2. ERYTHROMYCIN ES TABLETS [Suspect]
     Indication: INFECTION
  3. ERYTHROMYCIN [Suspect]
     Indication: DRUG USE FOR UNKNOWN INDICATION
     Route: 048
     Dates: start: 20050101
  4. PARACETAMOL [Concomitant]
     Indication: ALVEOLAR OSTEITIS
     Dosage: PRN
     Route: 048
     Dates: start: 20080907
  5. HEPARIN SODIUM [Concomitant]
     Indication: INFECTION
     Route: 048
     Dates: end: 20080907
  6. HEPARIN SODIUM [Concomitant]
     Indication: ALVEOLAR OSTEITIS

REACTIONS (4)
  - ABDOMINAL PAIN UPPER [None]
  - DIARRHOEA [None]
  - DRUG INEFFECTIVE [None]
  - NAUSEA [None]
